FAERS Safety Report 13587326 (Version 1)
Quarter: 2017Q2

REPORT INFORMATION
  Report Type: Spontaneous
  Country: US (occurrence: US)
  Receive Date: 20170526
  Receipt Date: 20170526
  Transmission Date: 20170830
  Serious: No
  Sender: FDA-Public Use
  Company Number: US-MIST-STN-2016-0029

PATIENT
  Age: 63 Year
  Sex: Male
  Weight: 97.61 kg

DRUGS (5)
  1. PRAVASTATIN. [Concomitant]
     Active Substance: PRAVASTATIN
     Indication: BLOOD CHOLESTEROL INCREASED
     Dosage: ONCE DAILY
     Route: 048
     Dates: start: 201510
  2. STENDRA [Suspect]
     Active Substance: AVANAFIL
     Dosage: AS REQUIRED
     Route: 048
     Dates: start: 201606
  3. LISINOPRIL. [Concomitant]
     Active Substance: LISINOPRIL
     Indication: HYPERTENSION
     Dosage: ONCE DAILY
     Route: 048
     Dates: start: 201510
  4. STENDRA [Suspect]
     Active Substance: AVANAFIL
     Indication: ERECTILE DYSFUNCTION
     Dosage: AS REQUIRED
     Route: 048
     Dates: start: 201602
  5. TAMSULOSIN [Concomitant]
     Active Substance: TAMSULOSIN
     Indication: URINARY RETENTION
     Dosage: ONCE DAILY
     Route: 048
     Dates: start: 201510

REACTIONS (7)
  - Semen volume decreased [Unknown]
  - Erection increased [Recovered/Resolved]
  - Ejaculation failure [Unknown]
  - Sensory disturbance [Unknown]
  - Anorgasmia [Unknown]
  - Nasal congestion [Unknown]
  - Dry mouth [Unknown]

NARRATIVE: CASE EVENT DATE: 201602
